FAERS Safety Report 5188503-6 (Version None)
Quarter: 2006Q4

REPORT INFORMATION
  Report Type: 
  Country: None (occurrence: None)
  Receive Date: 20061221
  Receipt Date: 20061212
  Transmission Date: 20070319
  Serious: Yes (Other)
  Sender: FDA-Public Use
  Company Number: JP-BRISTOL-MYERS SQUIBB COMPANY-13617899

PATIENT
  Age: 20 Year
  Sex: Male

DRUGS (4)
  1. ENDOXAN [Suspect]
     Indication: HODGKIN'S DISEASE
     Dates: start: 19880101, end: 19900101
  2. PREDONINE [Concomitant]
     Indication: HODGKIN'S DISEASE
     Dates: start: 19880101, end: 19900101
  3. ONCOVIN [Concomitant]
     Indication: HODGKIN'S DISEASE
     Dates: start: 19880101, end: 19900101
  4. PROCARBAZINE HCL [Concomitant]
     Indication: HODGKIN'S DISEASE
     Dates: start: 19880101, end: 19900101

REACTIONS (1)
  - NON-HODGKIN'S LYMPHOMA [None]
